FAERS Safety Report 8596768-3 (Version None)
Quarter: 2012Q3

REPORT INFORMATION
  Report Type: 
  Country: None (occurrence: None)
  Receive Date: 20120802
  Receipt Date: 20120711
  Transmission Date: 20120928
  Serious: Yes (Other)
  Sender: FDA-Public Use
  Company Number: JPI-P-022909

PATIENT
  Age: 54 Year
  Sex: Female

DRUGS (1)
  1. XYREM [Suspect]
     Indication: PRODUCT USED FOR UNKNOWN INDICATION
     Dosage: SEE IMAGE
     Route: 048

REACTIONS (7)
  - CHILLS [None]
  - NASAL DISORDER [None]
  - DYSPNOEA [None]
  - HYPERSOMNIA [None]
  - CARDIAC DISORDER [None]
  - LARYNGITIS [None]
  - ARRHYTHMIA [None]
